FAERS Safety Report 15586932 (Version 1)
Quarter: 2018Q4

REPORT INFORMATION
  Report Type: Report from Study
  Country: GT (occurrence: GT)
  Receive Date: 20181105
  Receipt Date: 20181105
  Transmission Date: 20190205
  Serious: Yes (Death)
  Sender: FDA-Public Use
  Company Number: GT-ASTRAZENECA-2018SF45177

PATIENT
  Sex: Male

DRUGS (2)
  1. ATACAND [Suspect]
     Active Substance: CANDESARTAN CILEXETIL
     Route: 048
  2. NEXIUM [Suspect]
     Active Substance: ESOMEPRAZOLE MAGNESIUM
     Dosage: 40.0MG UNKNOWN
     Route: 048

REACTIONS (1)
  - Death [Fatal]
